FAERS Safety Report 4651445-6 (Version None)
Quarter: 2005Q2

REPORT INFORMATION
  Report Type: 
  Country: None (occurrence: None)
  Receive Date: 20050404
  Receipt Date: 20050207
  Transmission Date: 20051028
  Serious: Yes (Hospitalization)
  Sender: FDA-Public Use
  Company Number: USA050188993

PATIENT
  Age: 78 Year
  Sex: Female

DRUGS (5)
  1. CYMBALTA [Suspect]
     Dosage: 60 MG DAY
  2. PAXIL [Concomitant]
  3. ELAVIL [Concomitant]
  4. NEURONTIN (GABAPENTIN PFIZER) [Concomitant]
  5. TRAMADOL HCL [Concomitant]

REACTIONS (2)
  - ASTHENIA [None]
  - SOMNOLENCE [None]
